FAERS Safety Report 5310849-9 (Version None)
Quarter: 2007Q2

REPORT INFORMATION
  Report Type: 
  Country: None (occurrence: None)
  Receive Date: 20070428
  Receipt Date: 20070418
  Transmission Date: 20071010
  Serious: Yes (Other)
  Sender: FDA-Public Use
  Company Number: US-PFIZER INC-2007031461

PATIENT
  Sex: Male

DRUGS (2)
  1. CELEBREX [Suspect]
     Indication: ARTHRITIS
     Dates: start: 20001201, end: 20030620
  2. BEXTRA [Suspect]
     Indication: ARTHRITIS
     Dates: start: 20020702, end: 20020801

REACTIONS (2)
  - DEPRESSION [None]
  - ISCHAEMIC STROKE [None]
